FAERS Safety Report 17038954 (Version 7)
Quarter: 2022Q2

REPORT INFORMATION
  Report Type: Spontaneous
  Country: CA (occurrence: CA)
  Receive Date: 20191115
  Receipt Date: 20220615
  Transmission Date: 20220720
  Serious: Yes (Life-Threatening, Other)
  Sender: FDA-Public Use
  Company Number: CA-009507513-1911CAN001523

PATIENT
  Age: 44 Year
  Sex: Female

DRUGS (104)
  1. INVANZ [Suspect]
     Active Substance: ERTAPENEM SODIUM
     Indication: Hidradenitis
     Dosage: UNK
     Route: 042
  2. INVANZ [Suspect]
     Active Substance: ERTAPENEM SODIUM
     Indication: Product used for unknown indication
     Dosage: UNK
     Route: 042
  3. ACZONE [Suspect]
     Active Substance: DAPSONE
     Indication: Hidradenitis
     Dosage: UNK
     Route: 061
  4. ACZONE [Suspect]
     Active Substance: DAPSONE
     Indication: Hidradenitis
     Dosage: UNK
     Route: 065
  5. ACZONE [Suspect]
     Active Substance: DAPSONE
     Indication: Product used for unknown indication
     Dosage: UNK
     Route: 048
  6. ACZONE [Suspect]
     Active Substance: DAPSONE
     Dosage: UNK
     Route: 061
  7. ACZONE [Suspect]
     Active Substance: DAPSONE
     Dosage: UNK
     Route: 061
  8. ACZONE [Suspect]
     Active Substance: DAPSONE
     Dosage: UNK
     Route: 065
  9. ACZONE [Suspect]
     Active Substance: DAPSONE
     Dosage: UNK
     Route: 048
  10. ACZONE [Suspect]
     Active Substance: DAPSONE
     Dosage: UNK
     Route: 061
  11. ACZONE [Suspect]
     Active Substance: DAPSONE
     Dosage: UNK
     Route: 061
  12. ACZONE [Suspect]
     Active Substance: DAPSONE
     Dosage: UNK
     Route: 065
  13. ACZONE [Suspect]
     Active Substance: DAPSONE
     Dosage: UNK
     Route: 048
  14. ACZONE [Suspect]
     Active Substance: DAPSONE
     Dosage: UNK
     Route: 061
  15. ACZONE [Suspect]
     Active Substance: DAPSONE
     Dosage: UNK
     Route: 061
  16. AMOXICILLIN [Suspect]
     Active Substance: AMOXICILLIN
     Indication: Hidradenitis
     Dosage: UNK
     Route: 065
  17. AMOXICILLIN [Suspect]
     Active Substance: AMOXICILLIN
     Dosage: DOSAGE FORM: NOT SPECIFIED
     Route: 065
  18. AMOXICILLIN\CLAVULANATE POTASSIUM [Suspect]
     Active Substance: AMOXICILLIN\CLAVULANATE POTASSIUM
     Indication: Hidradenitis
     Dosage: UNK
     Route: 065
  19. AMOXICILLIN\CLAVULANATE POTASSIUM [Suspect]
     Active Substance: AMOXICILLIN\CLAVULANATE POTASSIUM
     Indication: Product used for unknown indication
     Dosage: UNK
     Route: 065
  20. AMOXICILLIN\CLAVULANATE POTASSIUM [Suspect]
     Active Substance: AMOXICILLIN\CLAVULANATE POTASSIUM
     Dosage: UNK
     Route: 065
  21. CLINDAMYCIN PHOSPHATE [Suspect]
     Active Substance: CLINDAMYCIN PHOSPHATE
     Indication: Hidradenitis
     Dosage: UNK
     Route: 065
  22. CLINDAMYCIN PHOSPHATE [Suspect]
     Active Substance: CLINDAMYCIN PHOSPHATE
     Dosage: UNK
     Route: 061
  23. CLINDAMYCIN PHOSPHATE [Suspect]
     Active Substance: CLINDAMYCIN PHOSPHATE
     Dosage: UNK
     Route: 061
  24. CLINDAMYCIN PHOSPHATE [Suspect]
     Active Substance: CLINDAMYCIN PHOSPHATE
     Dosage: UNK
     Route: 065
  25. CLINDAMYCIN PHOSPHATE [Suspect]
     Active Substance: CLINDAMYCIN PHOSPHATE
     Dosage: UNK
     Route: 061
  26. CLINDAMYCIN PHOSPHATE [Suspect]
     Active Substance: CLINDAMYCIN PHOSPHATE
     Dosage: UNK
     Route: 061
  27. CLINDAMYCIN PHOSPHATE [Suspect]
     Active Substance: CLINDAMYCIN PHOSPHATE
     Dosage: UNK
     Route: 061
  28. CLINDAMYCIN PHOSPHATE [Suspect]
     Active Substance: CLINDAMYCIN PHOSPHATE
     Dosage: UNK
     Route: 061
  29. CLINDAMYCIN PHOSPHATE [Suspect]
     Active Substance: CLINDAMYCIN PHOSPHATE
     Dosage: UNK
     Route: 065
  30. CLINDAMYCIN HYDROCHLORIDE [Suspect]
     Active Substance: CLINDAMYCIN HYDROCHLORIDE
     Indication: Hidradenitis
     Dosage: UNK
     Route: 061
  31. CLINDAMYCIN HYDROCHLORIDE [Suspect]
     Active Substance: CLINDAMYCIN HYDROCHLORIDE
     Indication: Product used for unknown indication
     Dosage: UNK
     Route: 065
  32. CLINDAMYCIN HYDROCHLORIDE [Suspect]
     Active Substance: CLINDAMYCIN HYDROCHLORIDE
     Dosage: UNK
     Route: 061
  33. CLINDAMYCIN HYDROCHLORIDE [Suspect]
     Active Substance: CLINDAMYCIN HYDROCHLORIDE
     Dosage: UNK
     Route: 065
  34. CLINDAMYCIN HYDROCHLORIDE [Suspect]
     Active Substance: CLINDAMYCIN HYDROCHLORIDE
     Dosage: UNK
     Route: 061
  35. CLINDAMYCIN HYDROCHLORIDE [Suspect]
     Active Substance: CLINDAMYCIN HYDROCHLORIDE
     Dosage: UNK
     Route: 065
  36. DOXYCYCLINE HYCLATE [Suspect]
     Active Substance: DOXYCYCLINE HYCLATE
     Indication: Hidradenitis
     Dosage: UNK
     Route: 065
  37. DOXYCYCLINE HYCLATE [Suspect]
     Active Substance: DOXYCYCLINE HYCLATE
     Indication: Product used for unknown indication
     Dosage: UNK
     Route: 061
  38. DOXYCYCLINE HYCLATE [Suspect]
     Active Substance: DOXYCYCLINE HYCLATE
     Dosage: DOSAGE FORM: NOT SPECIFIED
     Route: 065
  39. DOXYCYCLINE HYCLATE [Suspect]
     Active Substance: DOXYCYCLINE HYCLATE
     Dosage: UNK
     Route: 065
  40. DOXYCYCLINE HYCLATE [Suspect]
     Active Substance: DOXYCYCLINE HYCLATE
     Dosage: UNK
     Route: 061
  41. DOXYCYCLINE HYCLATE [Suspect]
     Active Substance: DOXYCYCLINE HYCLATE
     Dosage: DOSAGE FORM: NOT SPECIFIED
     Route: 065
  42. DOXYCYCLINE HYCLATE [Suspect]
     Active Substance: DOXYCYCLINE HYCLATE
     Dosage: UNK
     Route: 065
  43. DOXYCYCLINE HYCLATE [Suspect]
     Active Substance: DOXYCYCLINE HYCLATE
     Dosage: UNK
     Route: 061
  44. DOXYCYCLINE HYCLATE [Suspect]
     Active Substance: DOXYCYCLINE HYCLATE
     Dosage: DOSAGE FORM: NOT SPECIFIED
     Route: 065
  45. ISOTRETINOIN [Suspect]
     Active Substance: ISOTRETINOIN
     Indication: Hidradenitis
     Dosage: UNK
     Route: 065
  46. ISOTRETINOIN [Suspect]
     Active Substance: ISOTRETINOIN
     Indication: Product used for unknown indication
     Dosage: DOSAGE FORM: NOT SPECIFIED
     Route: 065
  47. ISOTRETINOIN [Suspect]
     Active Substance: ISOTRETINOIN
     Dosage: UNK
     Route: 065
  48. ISOTRETINOIN [Suspect]
     Active Substance: ISOTRETINOIN
     Dosage: DOSAGE FORM: NOT SPECIFIED
     Route: 065
  49. ISOTRETINOIN [Suspect]
     Active Substance: ISOTRETINOIN
     Dosage: UNK
     Route: 065
  50. ISOTRETINOIN [Suspect]
     Active Substance: ISOTRETINOIN
     Dosage: DOSAGE FORM: NOT SPECIFIED
     Route: 065
  51. MINOCYCLINE HYDROCHLORIDE [Suspect]
     Active Substance: MINOCYCLINE HYDROCHLORIDE
     Indication: Product used for unknown indication
     Dosage: UNK
     Route: 048
  52. MINOCYCLINE HYDROCHLORIDE [Suspect]
     Active Substance: MINOCYCLINE HYDROCHLORIDE
     Indication: Hidradenitis
     Dosage: UNK
     Route: 065
  53. MINOCYCLINE HYDROCHLORIDE [Suspect]
     Active Substance: MINOCYCLINE HYDROCHLORIDE
     Dosage: UNK
     Route: 048
  54. MINOCYCLINE HYDROCHLORIDE [Suspect]
     Active Substance: MINOCYCLINE HYDROCHLORIDE
     Dosage: UNK
     Route: 065
  55. MINOCYCLINE HYDROCHLORIDE [Suspect]
     Active Substance: MINOCYCLINE HYDROCHLORIDE
     Dosage: UNK
     Route: 048
  56. MINOCYCLINE HYDROCHLORIDE [Suspect]
     Active Substance: MINOCYCLINE HYDROCHLORIDE
     Dosage: UNK
     Route: 065
  57. MOXIFLOXACIN [Suspect]
     Active Substance: MOXIFLOXACIN
     Indication: Hidradenitis
     Dosage: UNK
     Route: 065
  58. MOXIFLOXACIN [Suspect]
     Active Substance: MOXIFLOXACIN
     Dosage: UNK
     Route: 065
  59. MOXIFLOXACIN [Suspect]
     Active Substance: MOXIFLOXACIN
     Dosage: DOSAGE FORM: NOT SPECIFIED
     Route: 065
  60. NORITATE [Suspect]
     Active Substance: METRONIDAZOLE
     Indication: Hidradenitis
     Dosage: DOSAGE FORM: NOT SPECIFIED
     Route: 061
  61. NORITATE [Suspect]
     Active Substance: METRONIDAZOLE
     Indication: Product used for unknown indication
     Dosage: DOSAGE FORM: NOT SPECIFIED
     Route: 065
  62. NORITATE [Suspect]
     Active Substance: METRONIDAZOLE
     Dosage: UNK
     Route: 061
  63. NORITATE [Suspect]
     Active Substance: METRONIDAZOLE
     Dosage: DOSAGE FORM: NOT SPECIFIED
     Route: 061
  64. NORITATE [Suspect]
     Active Substance: METRONIDAZOLE
     Dosage: DOSAGE FORM: NOT SPECIFIED
     Route: 065
  65. NORITATE [Suspect]
     Active Substance: METRONIDAZOLE
     Dosage: UNK
     Route: 061
  66. NORITATE [Suspect]
     Active Substance: METRONIDAZOLE
     Dosage: DOSAGE FORM: NOT SPECIFIED
     Route: 061
  67. NORITATE [Suspect]
     Active Substance: METRONIDAZOLE
     Dosage: DOSAGE FORM: NOT SPECIFIED
     Route: 065
  68. NORITATE [Suspect]
     Active Substance: METRONIDAZOLE
     Dosage: UNK
     Route: 061
  69. NORITATE [Suspect]
     Active Substance: METRONIDAZOLE
     Dosage: UNK
     Route: 065
  70. PREDNISONE [Suspect]
     Active Substance: PREDNISONE
     Indication: Hidradenitis
     Route: 065
  71. PREDNISONE [Suspect]
     Active Substance: PREDNISONE
     Indication: Product used for unknown indication
     Dosage: DOSAGE FORM: NOT SPECIFIED
     Route: 065
  72. PREDNISONE [Suspect]
     Active Substance: PREDNISONE
     Route: 065
  73. PREDNISONE [Suspect]
     Active Substance: PREDNISONE
     Dosage: DOSAGE FORM: NOT SPECIFIED
     Route: 065
  74. PREDNISONE [Suspect]
     Active Substance: PREDNISONE
     Route: 065
  75. PREDNISONE [Suspect]
     Active Substance: PREDNISONE
     Dosage: DOSAGE FORM: NOT SPECIFIED
     Route: 065
  76. RIFAMPIN [Suspect]
     Active Substance: RIFAMPIN
     Indication: Hidradenitis
     Dosage: 150 MILLIGRAM
     Route: 065
  77. RIFAMPIN [Suspect]
     Active Substance: RIFAMPIN
     Dosage: UNK
     Route: 065
  78. RIFAMPIN [Suspect]
     Active Substance: RIFAMPIN
     Dosage: 150 MILLIGRAM
     Route: 065
  79. RIFAMPIN [Suspect]
     Active Substance: RIFAMPIN
     Dosage: UNK
     Route: 065
  80. RIFAMPIN [Suspect]
     Active Substance: RIFAMPIN
     Dosage: DOSAGE FORM: NOT SPECIFIED; 150 MILLIGRAM
     Route: 065
  81. TETRACYCLINE [Suspect]
     Active Substance: TETRACYCLINE
     Indication: Hidradenitis
     Dosage: UNK
     Route: 065
  82. TETRACYCLINE [Suspect]
     Active Substance: TETRACYCLINE
     Indication: Product used for unknown indication
     Dosage: UNK
     Route: 065
  83. TETRACYCLINE [Suspect]
     Active Substance: TETRACYCLINE
     Dosage: UNK
     Route: 065
  84. TRIAMCINOLONE [Suspect]
     Active Substance: TRIAMCINOLONE
     Indication: Hidradenitis
     Dosage: UNK
     Route: 065
  85. TRIAMCINOLONE ACETONIDE [Suspect]
     Active Substance: TRIAMCINOLONE ACETONIDE
     Indication: Hidradenitis
     Dosage: UNK
     Route: 026
  86. TRIAMCINOLONE ACETONIDE [Suspect]
     Active Substance: TRIAMCINOLONE ACETONIDE
     Indication: Product used for unknown indication
     Dosage: UNK
     Route: 026
  87. TRIAMCINOLONE ACETONIDE [Suspect]
     Active Substance: TRIAMCINOLONE ACETONIDE
     Dosage: UNK
     Route: 026
  88. ZINC [Suspect]
     Active Substance: ZINC
     Indication: Hidradenitis
     Route: 065
  89. ZINC [Suspect]
     Active Substance: ZINC
     Indication: Product used for unknown indication
     Dosage: UNK
     Route: 065
  90. ZINC [Suspect]
     Active Substance: ZINC
     Dosage: DOSAGE FORM: NOT SPECIFIED
     Route: 065
  91. ARESTIN [Suspect]
     Active Substance: MINOCYCLINE HYDROCHLORIDE
     Indication: Hidradenitis
     Dosage: EXTENDED RELEASE
     Route: 065
  92. ARESTIN [Suspect]
     Active Substance: MINOCYCLINE HYDROCHLORIDE
     Indication: Product used for unknown indication
     Dosage: EXTENDED RELEASE
     Route: 065
  93. RIFAMPIN [Suspect]
     Active Substance: RIFAMPIN
     Indication: Hidradenitis
     Dosage: UNK
     Route: 065
  94. RIFAMPIN [Suspect]
     Active Substance: RIFAMPIN
     Indication: Product used for unknown indication
     Dosage: DOSAGE FORM: NOT SPECIFIED
     Route: 065
  95. RIFAMPIN [Suspect]
     Active Substance: RIFAMPIN
     Dosage: UNK
     Route: 065
  96. RIFAMPIN [Suspect]
     Active Substance: RIFAMPIN
     Dosage: DOSAGE FORM: NOT SPECIFIED
     Route: 065
  97. RIFAMPIN [Suspect]
     Active Substance: RIFAMPIN
     Dosage: UNK
     Route: 065
  98. RIFAMPIN [Suspect]
     Active Substance: RIFAMPIN
     Dosage: DOSAGE FORM: NOT SPECIFIED
     Route: 065
  99. AVELOX [Suspect]
     Active Substance: MOXIFLOXACIN HYDROCHLORIDE
     Indication: Hidradenitis
     Route: 065
  100. AVELOX [Suspect]
     Active Substance: MOXIFLOXACIN HYDROCHLORIDE
     Indication: Product used for unknown indication
     Route: 065
  101. AVELOX [Suspect]
     Active Substance: MOXIFLOXACIN HYDROCHLORIDE
     Route: 065
  102. AMOXICILLIN [Suspect]
     Active Substance: AMOXICILLIN
     Indication: Hidradenitis
     Route: 065
  103. AMOXICILLIN [Suspect]
     Active Substance: AMOXICILLIN
     Route: 065
  104. AMOXICILLIN [Suspect]
     Active Substance: AMOXICILLIN
     Route: 065

REACTIONS (12)
  - Condition aggravated [Unknown]
  - Drug ineffective [Unknown]
  - Drug intolerance [Unknown]
  - Hidradenitis [Unknown]
  - Mobility decreased [Unknown]
  - Pain [Unknown]
  - Scar [Unknown]
  - Skin lesion [Unknown]
  - Skin odour abnormal [Unknown]
  - Suicidal ideation [Unknown]
  - Treatment failure [Unknown]
  - Wound secretion [Unknown]
